FAERS Safety Report 7215476-4 (Version None)
Quarter: 2011Q1

REPORT INFORMATION
  Report Type: 
  Country: None (occurrence: None)
  Receive Date: 20110107
  Receipt Date: 20110103
  Transmission Date: 20110831
  Serious: Yes (Hospitalization, Other)
  Sender: FDA-Public Use
  Company Number: A0836481A

PATIENT
  Age: 88 Year
  Sex: Female

DRUGS (1)
  1. PROMACTA [Suspect]
     Indication: IDIOPATHIC THROMBOCYTOPENIC PURPURA
     Route: 048
     Dates: start: 20090126

REACTIONS (5)
  - LYMPHADENOPATHY [None]
  - PNEUMONIA [None]
  - CHRONIC LYMPHOCYTIC LEUKAEMIA [None]
  - HEPATOSPLENOMEGALY [None]
  - INFECTION [None]
